FAERS Safety Report 18163570 (Version 1)
Quarter: 2020Q3

REPORT INFORMATION
  Report Type: Report from Study
  Country: US (occurrence: US)
  Receive Date: 20200818
  Receipt Date: 20200818
  Transmission Date: 20201103
  Serious: Yes (Other)
  Sender: FDA-Public Use
  Company Number: NVSC2020US225742

PATIENT
  Sex: Female

DRUGS (1)
  1. TABRECTA [Suspect]
     Active Substance: CAPMATINIB
     Indication: LUNG NEOPLASM MALIGNANT
     Dosage: 1 DF, BID
     Route: 048

REACTIONS (4)
  - Asthenia [Unknown]
  - Drug ineffective [Unknown]
  - Thrombosis [Unknown]
  - Central nervous system lesion [Unknown]
